FAERS Safety Report 18484272 (Version 1)
Quarter: 2020Q4

REPORT INFORMATION
  Report Type: Spontaneous
  Country: CH (occurrence: CH)
  Receive Date: 20201110
  Receipt Date: 20201110
  Transmission Date: 20210114
  Serious: Yes (Other)
  Sender: FDA-Public Use
  Company Number: CH-ROCHE-2708610

PATIENT
  Age: 45 Year
  Sex: Female

DRUGS (8)
  1. PREDNISON [Concomitant]
     Active Substance: PREDNISONE
     Indication: MULTIPLE SCLEROSIS
     Route: 048
     Dates: start: 2010
  2. CALCIMAGON D3 [Concomitant]
     Active Substance: CALCIUM\CHOLECALCIFEROL
     Route: 048
     Dates: start: 2010
  3. OCREVUS [Suspect]
     Active Substance: OCRELIZUMAB
     Indication: MULTIPLE SCLEROSIS
     Dosage: MOST RECENT DOSE OF OCRELIZUMAB WAS RECEIVED IN /JUN/2020.
     Route: 041
     Dates: start: 201812
  4. SOLU-MEDROL [Concomitant]
     Active Substance: METHYLPREDNISOLONE SODIUM SUCCINATE
     Indication: MULTIPLE SCLEROSIS
     Route: 042
     Dates: start: 2010
  5. REBIF [Concomitant]
     Active Substance: INTERFERON BETA-1A
  6. ULCOGANT [Concomitant]
     Active Substance: SUCRALFATE
     Route: 048
     Dates: start: 2010
  7. TYSABRI [Suspect]
     Active Substance: NATALIZUMAB
     Indication: MULTIPLE SCLEROSIS
     Dosage: MOST RECENT DOSE OF NATALIZUMAB WAS RECEIVED IN /DEC/2018.
     Route: 041
     Dates: start: 201212, end: 201812
  8. NEXIUM [Suspect]
     Active Substance: ESOMEPRAZOLE MAGNESIUM
     Indication: PRODUCT USED FOR UNKNOWN INDICATION
     Route: 048
     Dates: start: 201904

REACTIONS (2)
  - Gastric cancer [Unknown]
  - Herpes zoster [Recovered/Resolved]

NARRATIVE: CASE EVENT DATE: 2020
